FAERS Safety Report 9726068 (Version 1)
Quarter: 2013Q4

REPORT INFORMATION
  Report Type: Spontaneous
  Country: CN (occurrence: None)
  Receive Date: 20131129
  Receipt Date: 20131129
  Transmission Date: 20140711
  Serious: Yes (Death, Other)
  Sender: FDA-Public Use
  Company Number: VAL_02836_2013

PATIENT
  Age: 35 Year
  Sex: Male

DRUGS (1)
  1. BROMOCRIPTINE MESYLATE [Suspect]
     Indication: PROLACTINOMA
     Dosage: 3 DAYS UNTIL NOT CONTINUING

REACTIONS (8)
  - Psychotic disorder [None]
  - Completed suicide [None]
  - Depression [None]
  - Dysaesthesia [None]
  - Nervousness [None]
  - Irritability [None]
  - Blood sodium decreased [None]
  - Blood chloride decreased [None]
